FAERS Safety Report 12755572 (Version 1)
Quarter: 2016Q3

REPORT INFORMATION
  Report Type: Report from Study
  Country: DE (occurrence: DE)
  Receive Date: 20160916
  Receipt Date: 20160916
  Transmission Date: 20161109
  Serious: Yes (Hospitalization)
  Sender: FDA-Public Use
  Company Number: US-ASTRAZENECA-2016SE98079

PATIENT
  Age: 241 Day
  Sex: Female

DRUGS (12)
  1. PALIVIZUMAB [Suspect]
     Active Substance: PALIVIZUMAB
     Indication: PREMATURE BABY
     Dosage: 70 MG
     Route: 030
     Dates: start: 20091103, end: 20091103
  2. PALIVIZUMAB [Suspect]
     Active Substance: PALIVIZUMAB
     Indication: ANTIVIRAL PROPHYLAXIS
     Dosage: 120 MG
     Route: 030
     Dates: start: 20100322, end: 20100322
  3. PALIVIZUMAB [Suspect]
     Active Substance: PALIVIZUMAB
     Indication: ANTIVIRAL PROPHYLAXIS
     Dosage: 70 MG
     Route: 030
     Dates: start: 20091103, end: 20091103
  4. PALIVIZUMAB [Suspect]
     Active Substance: PALIVIZUMAB
     Indication: PREMATURE BABY
     Dosage: 100 MG
     Route: 030
     Dates: start: 20100112, end: 20100112
  5. PALIVIZUMAB [Suspect]
     Active Substance: PALIVIZUMAB
     Indication: PREMATURE BABY
     Dosage: 120 MG
     Route: 030
     Dates: start: 20100322, end: 20100322
  6. PALIVIZUMAB [Suspect]
     Active Substance: PALIVIZUMAB
     Indication: ANTIVIRAL PROPHYLAXIS
     Dosage: 120 MG
     Route: 030
     Dates: start: 20100212, end: 20100212
  7. PALIVIZUMAB [Suspect]
     Active Substance: PALIVIZUMAB
     Indication: PREMATURE BABY
     Dosage: 90 MG
     Route: 030
     Dates: start: 20091202, end: 20091202
  8. PALIVIZUMAB [Suspect]
     Active Substance: PALIVIZUMAB
     Indication: ANTIVIRAL PROPHYLAXIS
     Dosage: 100 MG
     Route: 030
     Dates: start: 20100112, end: 20100112
  9. PALIVIZUMAB [Suspect]
     Active Substance: PALIVIZUMAB
     Indication: PREMATURE BABY
     Dosage: 120 MG
     Route: 030
     Dates: start: 20100212, end: 20100212
  10. PALIVIZUMAB [Suspect]
     Active Substance: PALIVIZUMAB
     Indication: ANTIVIRAL PROPHYLAXIS
     Dosage: 90 MG
     Route: 030
     Dates: start: 20091202, end: 20091202
  11. PALIVIZUMAB [Suspect]
     Active Substance: PALIVIZUMAB
     Indication: ANTIVIRAL PROPHYLAXIS
     Dosage: 120 MG
     Route: 030
     Dates: start: 20100423, end: 20100423
  12. PALIVIZUMAB [Suspect]
     Active Substance: PALIVIZUMAB
     Indication: PREMATURE BABY
     Dosage: 120 MG
     Route: 030
     Dates: start: 20100423, end: 20100423

REACTIONS (3)
  - Bradycardia [Unknown]
  - Pneumonia [Recovered/Resolved]
  - Apnoea [Recovered/Resolved]

NARRATIVE: CASE EVENT DATE: 20100119
